FAERS Safety Report 10723904 (Version 1)
Quarter: 2015Q1

REPORT INFORMATION
  Report Type: Spontaneous
  Country: US (occurrence: None)
  Receive Date: 20150114
  Receipt Date: 20150114
  Transmission Date: 20150721
  Serious: Yes (Hospitalization, Other)
  Sender: FDA-Public Use
  Company Number: ADR-2014-02052

PATIENT
  Age: 56 Year
  Sex: Female

DRUGS (4)
  1. COMPOUNDED BACLOFEN INTRATHECAL 50MCG/ML [Suspect]
     Active Substance: BACLOFEN
     Indication: PAIN
  2. HYDROMORPHONE [Suspect]
     Active Substance: HYDROMORPHONE
     Indication: PAIN
  3. FLU SHOT [Suspect]
     Active Substance: INFLUENZA VIRUS VACCINE
     Dates: start: 20141027
  4. BUPIVACAINE [Suspect]
     Active Substance: BUPIVACAINE

REACTIONS (6)
  - Device failure [None]
  - Adrenal disorder [None]
  - Vomiting [None]
  - Vaccination complication [None]
  - Drug withdrawal syndrome [None]
  - Nausea [None]
